FAERS Safety Report 8511093-4 (Version None)
Quarter: 2012Q3

REPORT INFORMATION
  Report Type: 
  Country: None (occurrence: None)
  Receive Date: 20120716
  Receipt Date: 20120706
  Transmission Date: 20120928
  Serious: Yes (Death, Life-Threatening, Hospitalization, Other)
  Sender: FDA-Public Use
  Company Number: JP-COVIDIEN/TYCO HEALTHCARE/MALLINCKRODT-T201202459

PATIENT
  Sex: Male
  Weight: 67.2 kg

DRUGS (24)
  1. METHADONE HCL [Suspect]
     Dosage: 40 MG, BID
     Route: 048
     Dates: start: 20120529, end: 20120530
  2. BETAMETHASONE [Concomitant]
     Dosage: 2 MG, QD
  3. METHADONE HCL [Suspect]
     Dosage: 30 MG, BID
     Route: 048
     Dates: start: 20120516, end: 20120521
  4. MUCOSTA [Concomitant]
     Dosage: 100 MG, TID
  5. AZUNOL  OINTMENT [Suspect]
     Indication: DECUBITUS ULCER
     Dosage: AS NEEDED
     Dates: start: 20120515
  6. MOTILIUM [Concomitant]
     Dosage: 10 MG, TID
  7. MAGMITT [Concomitant]
     Dosage: 330 MG, AS NEEDED
     Dates: start: 20120405
  8. GASMOTIN [Concomitant]
     Dosage: 5 MG, TID
     Dates: start: 20120329
  9. PURSENNID                          /00571902/ [Concomitant]
     Dosage: 24 MG, QD
     Dates: start: 20120330
  10. METHADONE HCL [Suspect]
     Dosage: 25 MG, BID
     Route: 048
     Dates: start: 20120508, end: 20120515
  11. LYRICA [Concomitant]
     Dosage: 75 MG, BID
  12. LOXONIN [Concomitant]
     Dosage: 60 MG, TID
  13. DIART [Concomitant]
     Dosage: 60 MG, QD
     Dates: start: 20120522
  14. TELEMINSOFT [Concomitant]
     Indication: CONSTIPATION
     Dosage: 10 MG, PRN
     Dates: start: 20120329
  15. TRAVELMIN                          /00517301/ [Concomitant]
     Dosage: 1 TAB, TID
     Dates: start: 20120329
  16. MAGMITT [Concomitant]
     Indication: CONSTIPATION
     Dosage: 330 MG, TID
     Dates: start: 20120329
  17. METHADONE HCL [Suspect]
     Indication: CANCER PAIN
     Dosage: 35 MG, BID
     Route: 048
     Dates: start: 20120522, end: 20120528
  18. METHADONE HCL [Suspect]
     Dosage: 5 MG, TID
     Route: 048
     Dates: start: 20120329, end: 20120401
  19. METHADONE HCL [Suspect]
     Dosage: 10 MG, BID
     Route: 048
     Dates: start: 20120402, end: 20120416
  20. METHADONE HCL [Suspect]
     Dosage: 15 MG, BID
     Route: 048
     Dates: start: 20120417, end: 20120423
  21. METHADONE HCL [Suspect]
     Dosage: 20 MG, BID
     Route: 048
     Dates: start: 20120424, end: 20120507
  22. LANSOPRAZOLE [Concomitant]
     Dosage: 15 MG, QD
  23. LAXOBERON [Concomitant]
     Indication: CONSTIPATION
     Dosage: UNK, PRN
     Dates: start: 20120402
  24. OXINORM                            /00045603/ [Concomitant]
     Indication: CANCER PAIN
     Dosage: 30 MG, PRN

REACTIONS (4)
  - OEDEMA [None]
  - RESPIRATORY FAILURE [None]
  - GENERALISED OEDEMA [None]
  - INSOMNIA [None]
